FAERS Safety Report 21014738 (Version 1)
Quarter: 2022Q2

REPORT INFORMATION
  Report Type: Spontaneous
  Country: US (occurrence: US)
  Receive Date: 20220628
  Receipt Date: 20220628
  Transmission Date: 20220721
  Serious: No
  Sender: FDA-Public Use
  Company Number: US-009507513-2206USA001007

PATIENT
  Age: 83 Year
  Sex: Male

DRUGS (4)
  1. MOLNUPIRAVIR [Suspect]
     Active Substance: MOLNUPIRAVIR
     Indication: COVID-19 treatment
     Dosage: 4X 200MG TWICE DAILY MOLNUPIRAVIR CAPSULES
     Route: 048
     Dates: start: 20220121, end: 20220125
  2. XARELTO [Concomitant]
     Active Substance: RIVAROXABAN
     Dosage: 20MG XARELTO ONCE NIGHTLY
  3. HUMALOG [Concomitant]
     Active Substance: INSULIN LISPRO
  4. LEVEMIR [Concomitant]
     Active Substance: INSULIN DETEMIR

REACTIONS (1)
  - SARS-CoV-2 test positive [Not Recovered/Not Resolved]

NARRATIVE: CASE EVENT DATE: 20220601
